FAERS Safety Report 9735075 (Version 1)
Quarter: 2013Q4

REPORT INFORMATION
  Report Type: Spontaneous
  Country: US (occurrence: None)
  Receive Date: 20131204
  Receipt Date: 20131204
  Transmission Date: 20140711
  Serious: Yes (Death, Life-Threatening)
  Sender: FDA-Public Use
  Company Number: US-ALKEM-000242

PATIENT
  Age: 27 Year
  Sex: Male

DRUGS (4)
  1. METFORMIN (METFORMIN) [Suspect]
     Route: 048
  2. ZOLPIDEM (ZOLPIDEM) [Suspect]
     Route: 048
  3. VERAPAMIL (VERAPAMIL) [Suspect]
     Route: 048
  4. CITALOPRAM (CITALOPRAM) [Suspect]

REACTIONS (3)
  - Overdose [None]
  - Completed suicide [None]
  - Exposure via ingestion [None]
